FAERS Safety Report 18883293 (Version 1)
Quarter: 2021Q1

REPORT INFORMATION
  Report Type: Spontaneous
  Country: US (occurrence: US)
  Receive Date: 20210211
  Receipt Date: 20210211
  Transmission Date: 20210420
  Serious: No
  Sender: FDA-Public Use
  Company Number: US-PERRIGO-20US013236

PATIENT
  Age: 59 Year
  Sex: Male
  Weight: 102.13 kg

DRUGS (8)
  1. MULTIVITAMIN                       /07504101/ [Concomitant]
     Active Substance: VITAMINS
     Indication: SUPPLEMENTATION THERAPY
     Dosage: UNK, UNK
     Route: 048
  2. CETIRIZINE HYDROCHLORIDE. [Suspect]
     Active Substance: CETIRIZINE HYDROCHLORIDE
     Dosage: 10 MG, TWICE WITHIN 24 HOURS
     Route: 048
     Dates: start: 20200910, end: 20200911
  3. ASPIRIN 81 [Concomitant]
     Active Substance: ASPIRIN
     Indication: MIGRAINE WITH AURA
     Dosage: 81 MG, UNKNOWN
     Route: 048
  4. MINERALS NOS [Concomitant]
     Active Substance: MINERALS
     Indication: SUPPLEMENTATION THERAPY
     Dosage: UNK
     Route: 065
  5. CETIRIZINE HYDROCHLORIDE. [Suspect]
     Active Substance: CETIRIZINE HYDROCHLORIDE
     Indication: SEASONAL ALLERGY
     Dosage: 10 MG, NIGHTLY, PRN
     Route: 048
     Dates: start: 2016, end: 20200909
  6. COENZYME Q10 [Concomitant]
     Active Substance: DIETARY SUPPLEMENT\UBIDECARENONE
     Indication: SUPPLEMENTATION THERAPY
     Dosage: UNK, UNK
     Route: 048
  7. FISH OIL [Concomitant]
     Active Substance: FISH OIL
     Indication: SUPPLEMENTATION THERAPY
     Dosage: UNK, UNK
     Route: 048
  8. CITRUS AURANTIUM SSP. BERGAMIA [Concomitant]
     Indication: SUPPLEMENTATION THERAPY
     Dosage: UNK, UNK
     Route: 048

REACTIONS (2)
  - Inappropriate schedule of product administration [Recovered/Resolved]
  - Expired product administered [Recovered/Resolved]

NARRATIVE: CASE EVENT DATE: 20181201
